FAERS Safety Report 9969673 (Version 1)
Quarter: 2014Q1

REPORT INFORMATION
  Report Type: Spontaneous
  Country: US (occurrence: None)
  Receive Date: 20140131
  Receipt Date: 20140131
  Transmission Date: 20141002
  Serious: Yes (Hospitalization)
  Sender: FDA-Public Use
  Company Number: 090725

PATIENT
  Age: 41 Year
  Sex: Male
  Weight: 61.2 kg

DRUGS (5)
  1. KEPPRA [Suspect]
     Indication: CONVULSION
  2. LYRICA [Suspect]
     Indication: PAIN IN EXTREMITY
     Dosage: DOSE:  UNKNOWN
     Dates: start: 2013, end: 201305
  3. LYRICA [Suspect]
     Indication: ARTHRALGIA
     Dosage: DOSE:  UNKNOWN
     Dates: start: 2013, end: 201305
  4. PERCOCET /00867901/ [Concomitant]
  5. XANAX [Concomitant]

REACTIONS (2)
  - Convulsion [None]
  - Drug ineffective [None]
